FAERS Safety Report 12882528 (Version 2)
Quarter: 2016Q4

REPORT INFORMATION
  Report Type: Report from Study
  Country: FR (occurrence: FR)
  Receive Date: 20161025
  Receipt Date: 20161102
  Transmission Date: 20170207
  Serious: Yes (Hospitalization, Other)
  Sender: FDA-Public Use
  Company Number: FR-SEATTLE GENETICS-2016SGN01662

PATIENT

DRUGS (5)
  1. SURGAM [Concomitant]
     Active Substance: TIAPROFENIC ACID
     Indication: PAIN
     Dosage: 200 MG, UNK
  2. MEDROL [Concomitant]
     Active Substance: METHYLPREDNISOLONE
     Indication: LYMPHOMA
     Dosage: 16 MG, UNK
     Dates: start: 20160205
  3. IMODIUM [Concomitant]
     Active Substance: LOPERAMIDE HYDROCHLORIDE
     Indication: PROPHYLAXIS AGAINST DIARRHOEA
     Dosage: 2 MG, UNK
  4. BRENTUXIMAB VEDOTIN [Suspect]
     Active Substance: BRENTUXIMAB VEDOTIN
     Indication: HODGKIN^S DISEASE
     Dosage: UNK
     Route: 065
     Dates: start: 20160205
  5. RACECADOTRIL [Concomitant]
     Active Substance: RACECADOTRIL
     Indication: PROPHYLAXIS AGAINST DIARRHOEA
     Dosage: 175 MG, UNK
     Route: 048

REACTIONS (3)
  - Pancreatitis acute [Recovered/Resolved]
  - Splenic thrombosis [Recovered/Resolved]
  - Thrombophlebitis superficial [Recovered/Resolved]

NARRATIVE: CASE EVENT DATE: 20160216
